FAERS Safety Report 17751056 (Version 1)
Quarter: 2020Q2

REPORT INFORMATION
  Report Type: Spontaneous
  Country: US (occurrence: US)
  Receive Date: 20200506
  Receipt Date: 20200506
  Transmission Date: 20200714
  Serious: No
  Sender: FDA-Public Use
  Company Number: None

PATIENT
  Age: 77 Year
  Sex: Female
  Weight: 67.5 kg

DRUGS (9)
  1. CAPECITABINE. [Suspect]
     Active Substance: CAPECITABINE
     Indication: PANCREATIC CARCINOMA
     Route: 048
     Dates: start: 20200416, end: 20200505
  2. ONDANSETRON [Concomitant]
     Active Substance: ONDANSETRON
     Dates: end: 20200505
  3. MULTI COMPLETE [Concomitant]
     Dates: end: 20200505
  4. COLACE [Concomitant]
     Active Substance: DOCUSATE SODIUM
     Dates: end: 20200505
  5. OXYCODONE [Concomitant]
     Active Substance: OXYCODONE
     Dates: end: 20200505
  6. OMEPRAZOLE. [Concomitant]
     Active Substance: OMEPRAZOLE
     Dates: end: 20200505
  7. CALCIUM 500 + D3 [Concomitant]
     Dates: end: 20200505
  8. ASPIRIN. [Concomitant]
     Active Substance: ASPIRIN
     Dates: end: 20200505
  9. ATIVAN [Concomitant]
     Active Substance: LORAZEPAM
     Dates: end: 20200505

REACTIONS (1)
  - Death [None]

NARRATIVE: CASE EVENT DATE: 20200505
